FAERS Safety Report 7257984-6 (Version None)
Quarter: 2011Q1

REPORT INFORMATION
  Report Type: 
  Country: None (occurrence: None)
  Receive Date: 20110129
  Receipt Date: 20100611
  Transmission Date: 20110831
  Serious: No
  Sender: FDA-Public Use
  Company Number: US-ABBOTT-10P-163-0651455-00

PATIENT
  Sex: Male
  Weight: 83.99 kg

DRUGS (1)
  1. HUMIRA [Suspect]
     Indication: CROHN'S DISEASE

REACTIONS (6)
  - CROHN'S DISEASE [None]
  - WRONG TECHNIQUE IN DRUG USAGE PROCESS [None]
  - ABDOMINAL PAIN [None]
  - INJECTION SITE HAEMORRHAGE [None]
  - ABDOMINAL PAIN UPPER [None]
  - INJECTION SITE PAIN [None]
